FAERS Safety Report 7472597-9 (Version None)
Quarter: 2011Q2

REPORT INFORMATION
  Report Type: 
  Country: None (occurrence: None)
  Receive Date: 20110502
  Receipt Date: 20110415
  Transmission Date: 20111010
  Serious: Yes (Hospitalization)
  Sender: FDA-Public Use
  Company Number: 029746

PATIENT
  Sex: Female

DRUGS (3)
  1. ALDACTONE [Concomitant]
  2. FUROSEMIDE [Concomitant]
  3. XYZAL [Suspect]
     Indication: PRURITUS
     Dosage: (5 MG QD ORAL)
     Route: 048
     Dates: start: 20110314, end: 20110316

REACTIONS (8)
  - HEPATIC FUNCTION ABNORMAL [None]
  - DECREASED APPETITE [None]
  - BLOOD BILIRUBIN INCREASED [None]
  - GAMMA-GLUTAMYLTRANSFERASE INCREASED [None]
  - ALANINE AMINOTRANSFERASE INCREASED [None]
  - DYSPNOEA [None]
  - ASPARTATE AMINOTRANSFERASE INCREASED [None]
  - BLOOD LACTATE DEHYDROGENASE INCREASED [None]
